FAERS Safety Report 9271135 (Version 2)
Quarter: 2013Q2

REPORT INFORMATION
  Report Type: Report from Study
  Country: US (occurrence: US)
  Receive Date: 20130506
  Receipt Date: 20130514
  Transmission Date: 20140414
  Serious: Yes (Other)
  Sender: FDA-Public Use
  Company Number: PHEH2013US009672

PATIENT
  Age: 72 Year
  Sex: Male

DRUGS (12)
  1. AFINITOR [Suspect]
     Dosage: 10 MG, DAILY
     Route: 048
     Dates: start: 20130211, end: 20130509
  2. CALCITROL [Concomitant]
  3. RENVELA [Concomitant]
  4. RENA-VITE [Concomitant]
  5. PHOSLO [Concomitant]
  6. SENSIPAR [Concomitant]
  7. HYDROXYZINE [Concomitant]
  8. LOVAZA [Concomitant]
  9. ATORVASTATIN [Concomitant]
  10. METOPROLOLO EG [Concomitant]
  11. RANITIDINE [Concomitant]
  12. NIFEDIPINE ER [Concomitant]

REACTIONS (7)
  - Faeces discoloured [Recovering/Resolving]
  - Haemoglobin decreased [Recovering/Resolving]
  - Full blood count decreased [Recovering/Resolving]
  - Skin ulcer [Recovering/Resolving]
  - Abdominal discomfort [Recovering/Resolving]
  - Herpes zoster [Recovering/Resolving]
  - Stomatitis [Recovering/Resolving]
